FAERS Safety Report 10102578 (Version 2)
Quarter: 2014Q2

REPORT INFORMATION
  Report Type: Spontaneous
  Country: PL (occurrence: PL)
  Receive Date: 20140424
  Receipt Date: 20140528
  Transmission Date: 20141212
  Serious: Yes (Other)
  Sender: FDA-Public Use
  Company Number: PL-GE HEALTHCARE MEDICAL DIAGNOSTICS-OMPQ-PR-1404S-0399

PATIENT
  Age: 53 Year
  Sex: Female
  Weight: 93 kg

DRUGS (9)
  1. OMNIPAQUE [Suspect]
     Indication: PRODUCT USED FOR UNKNOWN INDICATION
     Route: 042
     Dates: start: 20140411, end: 20140411
  2. OMNIPAQUE [Suspect]
     Indication: DIAGNOSTIC PROCEDURE
  3. CAPTOPRIL [Concomitant]
     Route: 060
  4. METFORMAX [Concomitant]
  5. KARBI-COMBI [Concomitant]
  6. IPP [Concomitant]
  7. BETO [Concomitant]
  8. NORVASC [Concomitant]
  9. AMLOPIN [Concomitant]

REACTIONS (5)
  - Eyelid oedema [Recovered/Resolved]
  - Eye pruritus [Recovered/Resolved]
  - Erythema [Recovered/Resolved]
  - Rash [Recovered/Resolved]
  - Pruritus [Recovered/Resolved]
